FAERS Safety Report 5312845-4 (Version None)
Quarter: 2007Q2

REPORT INFORMATION
  Report Type: 
  Country: None (occurrence: None)
  Receive Date: 20070430
  Receipt Date: 20070418
  Transmission Date: 20071010
  Serious: Yes (Other)
  Sender: FDA-Public Use
  Company Number: ES-PFIZER INC-2007033920

PATIENT
  Age: 39 Year
  Sex: Male

DRUGS (1)
  1. VIRACEPT [Suspect]
     Indication: HIV INFECTION
     Route: 048

REACTIONS (3)
  - DYSGEUSIA [None]
  - ILL-DEFINED DISORDER [None]
  - UNEVALUABLE EVENT [None]
